FAERS Safety Report 17618429 (Version 6)
Quarter: 2020Q3

REPORT INFORMATION
  Report Type: Report from Study
  Country: CA (occurrence: CA)
  Receive Date: 20200402
  Receipt Date: 20200907
  Transmission Date: 20201102
  Serious: Yes (Other)
  Sender: FDA-Public Use
  Company Number: PHHY2012CA002802

PATIENT
  Age: 34 Year
  Sex: Female

DRUGS (14)
  1. SANDOSTATIN LAR DEPOT [Suspect]
     Active Substance: OCTREOTIDE ACETATE
     Indication: ACROMEGALY
     Dosage: 30 MG, (EVERY 3 WEEKS)
     Route: 030
     Dates: start: 20060802
  2. SANDOSTATIN LAR DEPOT [Suspect]
     Active Substance: OCTREOTIDE ACETATE
     Dosage: 20 MG, Q2W
     Route: 030
  3. CABERGOLINE. [Suspect]
     Active Substance: CABERGOLINE
     Indication: INSULIN-LIKE GROWTH FACTOR INCREASED
  4. DIOVAN HCT [Concomitant]
     Active Substance: HYDROCHLOROTHIAZIDE\VALSARTAN
     Indication: PRODUCT USED FOR UNKNOWN INDICATION
     Dosage: 160 MG, QD
     Route: 048
  5. SANDOSTATIN LAR DEPOT [Suspect]
     Active Substance: OCTREOTIDE ACETATE
     Dosage: 40 MG, (QMO) EVERY 4 WEEKS
     Route: 030
     Dates: start: 20060802, end: 20130410
  6. SANDOSTATIN LAR DEPOT [Suspect]
     Active Substance: OCTREOTIDE ACETATE
     Dosage: 30 MG, QMO
     Route: 065
     Dates: start: 20150401
  7. SANDOSTATIN LAR DEPOT [Suspect]
     Active Substance: OCTREOTIDE ACETATE
     Dosage: 40 MG, QMO
     Route: 030
     Dates: start: 20200219
  8. SANDOSTATIN LAR DEPOT [Suspect]
     Active Substance: OCTREOTIDE ACETATE
     Dosage: 40 MG, (QMO) EVERY 4 WEEKS
     Route: 030
     Dates: start: 20190612
  9. SANDOSTATIN LAR DEPOT [Suspect]
     Active Substance: OCTREOTIDE ACETATE
     Dosage: 40 MG, (QMO) EVERY 4 WEEKS
     Route: 030
     Dates: start: 20190807
  10. SANDOSTATIN LAR DEPOT [Suspect]
     Active Substance: OCTREOTIDE ACETATE
     Dosage: 30 MG, QMO (EVERY 4 WEEKS)
     Route: 030
     Dates: start: 20151231
  11. SANDOSTATIN LAR DEPOT [Suspect]
     Active Substance: OCTREOTIDE ACETATE
     Dosage: 60 MG, (QMO) EVERY 4 WEEKS
     Route: 030
  12. SANDOSTATIN LAR DEPOT [Suspect]
     Active Substance: OCTREOTIDE ACETATE
     Dosage: 30 MG, (QMO) EVERY 4 WEEKS
     Route: 030
  13. SANDOSTATIN LAR DEPOT [Suspect]
     Active Substance: OCTREOTIDE ACETATE
     Dosage: 40 MG, QMO
     Route: 030
     Dates: start: 20200513
  14. CABERGOLINE. [Suspect]
     Active Substance: CABERGOLINE
     Indication: PROLACTIN-PRODUCING PITUITARY TUMOUR
     Dosage: 1 DF, QW
     Route: 048
     Dates: start: 20191217, end: 20200107

REACTIONS (28)
  - Blood pressure increased [Unknown]
  - Swelling face [Unknown]
  - Visual impairment [Unknown]
  - Eye swelling [Unknown]
  - Injection site mass [Recovered/Resolved]
  - Constipation [Unknown]
  - Stress [Unknown]
  - Urticaria [Recovered/Resolved]
  - Prolactin-producing pituitary tumour [Unknown]
  - Body temperature decreased [Unknown]
  - Lip swelling [Unknown]
  - Injection site haemorrhage [Recovered/Resolved]
  - Jaw disorder [Not Recovered/Not Resolved]
  - Tongue disorder [Not Recovered/Not Resolved]
  - Syringe issue [Unknown]
  - Injection site scar [Recovered/Resolved]
  - Injection site scar [Unknown]
  - Blood growth hormone increased [Recovering/Resolving]
  - Malaise [Unknown]
  - Insulin-like growth factor increased [Recovered/Resolved]
  - Nausea [Unknown]
  - Weight decreased [Unknown]
  - Feeling abnormal [Unknown]
  - Ear infection [Unknown]
  - Gastroenteritis [Unknown]
  - Inappropriate schedule of product administration [Unknown]
  - Injection site pain [Recovered/Resolved]
  - Injection site pain [Unknown]

NARRATIVE: CASE EVENT DATE: 20060802
